FAERS Safety Report 5044616-0 (Version None)
Quarter: 2006Q2

REPORT INFORMATION
  Report Type: 
  Country: None (occurrence: None)
  Receive Date: 20060629
  Receipt Date: 20060615
  Transmission Date: 20061013
  Serious: Yes (Other)
  Sender: FDA-Public Use
  Company Number: 2006-BP-06788RO

PATIENT
  Age: 30 Year
  Sex: Female

DRUGS (1)
  1. LITHIUM CARBONATE [Suspect]
     Indication: BIPOLAR DISORDER
     Dosage: 800 MG DAILY, PO
     Route: 048
     Dates: start: 20010901, end: 20040101

REACTIONS (7)
  - ANTIPSYCHOTIC DRUG LEVEL BELOW THERAPEUTIC [None]
  - AUTOIMMUNE THYROIDITIS [None]
  - GOITRE [None]
  - HYPOMANIA [None]
  - MANIA [None]
  - ORGAN FAILURE [None]
  - THYROID DISORDER [None]
